FAERS Safety Report 8713660 (Version 2)
Quarter: 2012Q4

REPORT INFORMATION
  Report Type: 
  Country: US (occurrence: US)
  Receive Date: 20120808
  Receipt Date: 20120913
  Transmission Date: 20130627
  Serious: No
  Sender: FDA-Public Use
  Company Number: US-ASTRAZENECA-2012SE54377

PATIENT
  Age: 73 Year
  Sex: Female

DRUGS (4)
  1. SYMBICORT PMDI [Suspect]
     Dosage: UNKNOWN DOSE AND FREQUENCY
     Route: 055
  2. TOPROL XL [Suspect]
     Route: 048
  3. NEURONTIN [Concomitant]
  4. TRILIPITAL [Concomitant]

REACTIONS (4)
  - Asthma [Unknown]
  - Dyspnoea [Unknown]
  - Abasia [Unknown]
  - Amnesia [Unknown]
